FAERS Safety Report 5808765-9 (Version None)
Quarter: 2008Q3

REPORT INFORMATION
  Report Type: 
  Country: None (occurrence: None)
  Receive Date: 20080710
  Receipt Date: 20080710
  Transmission Date: 20090109
  Serious: Yes (Other)
  Sender: FDA-Public Use
  Company Number: None

PATIENT
  Age: 82 Year
  Sex: Female
  Weight: 56.246 kg

DRUGS (2)
  1. DIGITEK .25MG ACTAVIS TOTOWA LLC FORMYLAN PHARM [Suspect]
     Indication: EXTRASYSTOLES
     Dates: start: 19920101, end: 20070116
  2. DIGITEK .25MG ACTAVIS TOTOWA LLC FORMYLAN PHARM [Suspect]
     Indication: HEART RATE INCREASED
     Dates: start: 19920101, end: 20070116

REACTIONS (4)
  - DIZZINESS POSTURAL [None]
  - EAR INFECTION VIRAL [None]
  - PHARMACEUTICAL PRODUCT COMPLAINT [None]
  - THERAPEUTIC RESPONSE UNEXPECTED WITH DRUG SUBSTITUTION [None]
